FAERS Safety Report 10202376 (Version 1)
Quarter: 2014Q2

REPORT INFORMATION
  Report Type: Spontaneous
  Country: US (occurrence: US)
  Receive Date: 20140528
  Receipt Date: 20140528
  Transmission Date: 20141212
  Serious: No
  Sender: FDA-Public Use
  Company Number: US-BRISTOL-MYERS SQUIBB COMPANY-20588455

PATIENT
  Age: 36 Year
  Sex: Male
  Weight: 81.63 kg

DRUGS (4)
  1. BYDUREON [Suspect]
     Route: 058
  2. METFORMIN HCL [Suspect]
  3. TRADJENTA [Suspect]
  4. MARIJUANA [Concomitant]

REACTIONS (3)
  - Drug dose omission [Unknown]
  - Headache [Unknown]
  - Blood glucose decreased [Recovering/Resolving]
